FAERS Safety Report 23498694 (Version 1)
Quarter: 2024Q1

REPORT INFORMATION
  Report Type: Spontaneous
  Country: FR (occurrence: FR)
  Receive Date: 20240207
  Receipt Date: 20240207
  Transmission Date: 20240409
  Serious: Yes (Hospitalization, Disabling, Other)
  Sender: FDA-Public Use
  Company Number: FR-DENTSPLY-2024SCDP000032

PATIENT
  Age: 46 Year
  Sex: Female

DRUGS (2)
  1. LIDOCAINE HYDROCHLORIDE AND EPINEPHRINE BITARTRATE [Suspect]
     Active Substance: EPINEPHRINE BITARTRATE\LIDOCAINE HYDROCHLORIDE
     Indication: Spinal anaesthesia
     Dosage: 10 MILLILITER TOTAL LIDOCAINE 2% ADRENALINE AGUETTANT, SOLUTION FOR INJECTION IN VIAL
     Route: 008
     Dates: start: 20240110, end: 20240110
  2. ROPIVACAINE HYDROCHLORIDE [Suspect]
     Active Substance: ROPIVACAINE HYDROCHLORIDE
     Indication: Spinal anaesthesia
     Dosage: 3 MILLILITER PER HOUR
     Route: 008
     Dates: start: 20240110, end: 20240111

REACTIONS (1)
  - Arachnoiditis [None]

NARRATIVE: CASE EVENT DATE: 20240111
